FAERS Safety Report 21732754 (Version 1)
Quarter: 2022Q4

REPORT INFORMATION
  Report Type: Spontaneous
  Country: US (occurrence: US)
  Receive Date: 20221215
  Receipt Date: 20221215
  Transmission Date: 20230112
  Serious: Yes (Hospitalization)
  Sender: FDA-Public Use
  Company Number: US-STRIDES ARCOLAB LIMITED-2022SP010753

PATIENT
  Age: 30 Year
  Sex: Male

DRUGS (6)
  1. DIAZEPAM [Suspect]
     Active Substance: DIAZEPAM
     Indication: Drug withdrawal syndrome
     Dosage: 20 MILLIGRAM
     Route: 048
  2. HALOPERIDOL [Suspect]
     Active Substance: HALOPERIDOL
     Indication: Drug withdrawal syndrome
     Dosage: 10 MILLIGRAM
     Route: 030
  3. BUPRENORPHINE [Suspect]
     Active Substance: BUPRENORPHINE
     Indication: Drug withdrawal syndrome
     Dosage: 4 MILLIGRAM, TID, THREE TIMES, SEPARATED BY 1 TO 2 HOURS
     Route: 065
  4. BUPRENORPHINE [Suspect]
     Active Substance: BUPRENORPHINE
     Dosage: 4 MILLIGRAM, 2 DOSES
     Route: 060
  5. BUPRENORPHINE [Suspect]
     Active Substance: BUPRENORPHINE
     Dosage: 16 MILLIGRAM
     Route: 060
  6. CLONIDINE [Suspect]
     Active Substance: CLONIDINE
     Indication: Drug withdrawal syndrome
     Dosage: UNK
     Route: 065

REACTIONS (1)
  - Drug ineffective for unapproved indication [Unknown]
